FAERS Safety Report 11604864 (Version 2)
Quarter: 2015Q4

REPORT INFORMATION
  Report Type: Spontaneous
  Country: US (occurrence: US)
  Receive Date: 20151007
  Receipt Date: 20151030
  Transmission Date: 20160304
  Serious: Yes (Other)
  Sender: FDA-Public Use
  Company Number: US-PFIZER INC-2015329683

PATIENT
  Age: 72 Year
  Sex: Female
  Weight: 86.18 kg

DRUGS (22)
  1. SPIRIVA [Concomitant]
     Active Substance: TIOTROPIUM BROMIDE MONOHYDRATE
     Indication: PULMONARY HYPERTENSION
  2. PROAIR HFA [Concomitant]
     Active Substance: ALBUTEROL SULFATE
     Indication: DYSPNOEA
     Dosage: 90 MCG PER ACTUATION INHALER, TAKES TWO PUFFS, EVERY 4 HRS
     Route: 055
  3. ASPIRIN. [Concomitant]
     Active Substance: ASPIRIN
     Indication: CARDIAC DISORDER
     Dosage: 81 MG, DAILY
     Route: 048
  4. CYMBALTA [Concomitant]
     Active Substance: DULOXETINE HYDROCHLORIDE
     Indication: BACK DISORDER
     Dosage: 60 MG, 1X/DAY
     Route: 048
  5. SPIRIVA [Concomitant]
     Active Substance: TIOTROPIUM BROMIDE MONOHYDRATE
     Indication: CHRONIC OBSTRUCTIVE PULMONARY DISEASE
     Dosage: 18 MCG INHALATION CAPSULE, 1X/DAY
     Route: 055
  6. LASIX [Concomitant]
     Active Substance: FUROSEMIDE
     Indication: FLUID RETENTION
     Dosage: 40 MG, 2X/DAY
     Route: 048
  7. K-DUR [Concomitant]
     Active Substance: POTASSIUM CHLORIDE
     Indication: BLOOD POTASSIUM
     Dosage: 10 MEQ, 1X/DAY
     Route: 048
  8. ZELIRIS [Concomitant]
     Indication: DYSPNOEA
     Dosage: 500 MCG, 1X/DAY
     Route: 048
  9. LIPITOR [Concomitant]
     Active Substance: ATORVASTATIN CALCIUM
     Indication: BLOOD CHOLESTEROL ABNORMAL
     Dosage: 40 MG, ONCE PER DAY AT BEDTIME
     Route: 048
  10. REVATIO [Suspect]
     Active Substance: SILDENAFIL CITRATE
     Indication: LUNG DISORDER
     Dosage: 20 MG, 3X/DAY
     Route: 048
     Dates: start: 201101
  11. COLACE [Concomitant]
     Active Substance: DOCUSATE SODIUM
     Indication: CONSTIPATION
     Dosage: 100 MG, 2X/DAY
     Route: 048
  12. ALBUTEROL NEBULIZER [Concomitant]
     Active Substance: ALBUTEROL
     Indication: DYSPNOEA
     Dosage: 2.5 MG/3ML, EVERY 4 HRS
  13. CLONIDINE HCL [Concomitant]
     Active Substance: CLONIDINE HYDROCHLORIDE
     Indication: DYSPNOEA
     Dosage: 0.1 MG, 3X/DAY
     Route: 048
  14. PROCARDIA XL [Concomitant]
     Active Substance: NIFEDIPINE
     Indication: CARDIAC DISORDER
     Dosage: 60 MG, DAILY
     Route: 048
  15. NORMODYNE [Concomitant]
     Active Substance: LABETALOL HYDROCHLORIDE
     Indication: BLOOD PRESSURE ABNORMAL
     Dosage: 100 MG TABLET, TWO TABLETS, EVERY 12 HOURS
  16. KLOR-CON [Concomitant]
     Active Substance: POTASSIUM CHLORIDE
     Indication: BLOOD POTASSIUM DECREASED
     Dosage: 10 MEQ, 1X/DAY
     Route: 048
  17. ALDACTONE [Concomitant]
     Active Substance: SPIRONOLACTONE
     Indication: DYSPNOEA
     Dosage: 25 MG, 1X/DAY
     Route: 048
  18. HYDROCODONE/TYLENOL [Concomitant]
     Indication: ARTHRITIS
     Dosage: 1 TABLET EVERY 4 HRS
     Route: 048
     Dates: start: 2012
  19. PREDNISONE. [Concomitant]
     Active Substance: PREDNISONE
     Indication: LUNG DISORDER
     Dosage: 10 MG, 1X/DAY
     Route: 048
  20. KLONOPIN [Concomitant]
     Active Substance: CLONAZEPAM
     Indication: NERVOUSNESS
     Dosage: 1 MG, 2X/DAY
     Route: 048
  21. ADVAIR DISKUS [Concomitant]
     Active Substance: FLUTICASONE PROPIONATE\SALMETEROL XINAFOATE
     Indication: DYSPNOEA
     Dosage: [FLUTICASONE 250 MCG]/[SALMETEROL 50 MCG] PER DOSE INHALER, 2X/DAY
     Route: 055
  22. ASPIRIN. [Concomitant]
     Active Substance: ASPIRIN
     Indication: POOR PERIPHERAL CIRCULATION

REACTIONS (11)
  - Arthritis [Not Recovered/Not Resolved]
  - Peripheral swelling [Unknown]
  - Blood iron decreased [Unknown]
  - Vitamin D decreased [Unknown]
  - Abasia [Not Recovered/Not Resolved]
  - Pain in extremity [Unknown]
  - Lung disorder [Not Recovered/Not Resolved]
  - Chronic obstructive pulmonary disease [Not Recovered/Not Resolved]
  - Condition aggravated [Not Recovered/Not Resolved]
  - Scoliosis [Not Recovered/Not Resolved]
  - Malaise [Unknown]

NARRATIVE: CASE EVENT DATE: 2012
